FAERS Safety Report 6680038-4 (Version None)
Quarter: 2010Q2

REPORT INFORMATION
  Report Type: 
  Country: None (occurrence: None)
  Receive Date: 20100413
  Receipt Date: 20100401
  Transmission Date: 20101027
  Serious: Yes (Hospitalization)
  Sender: FDA-Public Use
  Company Number: TR-WATSON-2010-04792

PATIENT
  Age: 68 Year
  Sex: Female

DRUGS (3)
  1. FENTANYL-50 [Suspect]
     Indication: GENERAL ANAESTHESIA
     Dosage: 50 MCG, SINGLE
  2. VECURONIUM BROMIDE (WATSON LABORATORIES) [Suspect]
     Indication: GENERAL ANAESTHESIA
     Dosage: 7 MG, SINGLE
  3. PROPOFOL [Suspect]
     Indication: GENERAL ANAESTHESIA
     Dosage: 140 MG, SINGLE

REACTIONS (3)
  - ARTERIOSPASM CORONARY [None]
  - HYPOTENSION [None]
  - PRINZMETAL ANGINA [None]
